FAERS Safety Report 17696670 (Version 1)
Quarter: 2020Q2

REPORT INFORMATION
  Report Type: Report from Study
  Country: None (occurrence: US)
  Receive Date: 20200423
  Receipt Date: 20200423
  Transmission Date: 20200714
  Serious: Yes (Other)
  Sender: FDA-Public Use
  Company Number: US-ABBVIE-20K-163-3312189-00

PATIENT
  Age: 43 Year
  Sex: Female

DRUGS (1)
  1. HUMIRA [Suspect]
     Active Substance: ADALIMUMAB
     Indication: HIDRADENITIS
     Dosage: CITRATE FREE
     Route: 058

REACTIONS (6)
  - Surgery [Unknown]
  - Wound secretion [Unknown]
  - Nasopharyngitis [Unknown]
  - Bronchitis [Unknown]
  - Renal pain [Unknown]
  - Procedural pain [Unknown]

NARRATIVE: CASE EVENT DATE: 201909
